FAERS Safety Report 7939462-1 (Version None)
Quarter: 2011Q4

REPORT INFORMATION
  Report Type: 
  Country: None (occurrence: None)
  Receive Date: 20111125
  Receipt Date: 20111111
  Transmission Date: 20120403
  Serious: Yes (Hospitalization)
  Sender: FDA-Public Use
  Company Number: ES-ROCHE-1014902

PATIENT
  Sex: Male
  Weight: 66 kg

DRUGS (8)
  1. PREDNISONE [Suspect]
     Route: 048
     Dates: start: 20111017
  2. MABTHERA [Suspect]
     Indication: LYMPHOCYTIC LEUKAEMIA
     Route: 042
     Dates: start: 20110912, end: 20110912
  3. FOLI DOCE [Concomitant]
     Route: 048
  4. SEPTRA [Concomitant]
     Indication: PROPHYLAXIS
     Route: 048
  5. VALSARTAN [Concomitant]
     Route: 048
  6. PANTOPRAZOLE [Concomitant]
     Indication: DYSPEPSIA
     Route: 048
  7. SIMVASTATIN [Concomitant]
     Indication: HYPERCHOLESTEROLAEMIA
     Route: 048
  8. PREDNISONE [Suspect]
     Indication: LYMPHOCYTIC LEUKAEMIA
     Route: 048
     Dates: start: 20111008, end: 20111017

REACTIONS (1)
  - PSYCHOTIC DISORDER [None]
